FAERS Safety Report 6196113-7 (Version None)
Quarter: 2009Q2

REPORT INFORMATION
  Report Type: 
  Country: None (occurrence: None)
  Receive Date: 20090520
  Receipt Date: 20090512
  Transmission Date: 20091009
  Serious: Yes (Hospitalization)
  Sender: FDA-Public Use
  Company Number: CN-ASTRAZENECA-2009AP02949

PATIENT
  Age: 80 Year
  Sex: Male

DRUGS (3)
  1. LIDOCAINE [Suspect]
     Indication: ARRHYTHMIA
     Dates: start: 20080430
  2. MEXILETINE HYDROCHLORIDE [Concomitant]
     Indication: ARRHYTHMIA
  3. ISOSORBIDE MONONITRATE [Concomitant]
     Indication: CORONARY ARTERY DISEASE

REACTIONS (1)
  - SPEECH DISORDER [None]
